FAERS Safety Report 21422281 (Version 1)
Quarter: 2022Q4

REPORT INFORMATION
  Report Type: Other
  Country: US (occurrence: None)
  Receive Date: 20221007
  Receipt Date: 20221007
  Transmission Date: 20230113
  Serious: Yes (Other)
  Sender: FDA-Public Use
  Company Number: US-ROCHE-3027143

PATIENT
  Age: 44 Year
  Sex: Male
  Weight: 110.09 kg

DRUGS (1)
  1. OCREVUS [Suspect]
     Active Substance: OCRELIZUMAB
     Indication: Multiple sclerosis
     Dosage: 300MG EVERY 2 WEEK LATER 600MG EVERY 6 MONTHS
     Route: 042
     Dates: start: 20210709

REACTIONS (5)
  - Multiple sclerosis [Unknown]
  - Seizure [Unknown]
  - Gait disturbance [Unknown]
  - Fall [Unknown]
  - COVID-19 [Recovered/Resolved]

NARRATIVE: CASE EVENT DATE: 20220723
